FAERS Safety Report 25065576 (Version 6)
Quarter: 2025Q2

REPORT INFORMATION
  Report Type: Report from Study
  Country: US (occurrence: US)
  Receive Date: 20250311
  Receipt Date: 20250610
  Transmission Date: 20250717
  Serious: Yes (Hospitalization, Other)
  Sender: SYNDAX
  Company Number: US-SYNDAX PHARMACEUTICALS, INC.-2025US000212

PATIENT
  Age: 50 Year
  Sex: Male

DRUGS (3)
  1. REVUFORJ [Suspect]
     Active Substance: REVUMENIB CITRATE
     Indication: Product used for unknown indication
     Dosage: 160 MILLIGRAM, BID
     Route: 048
  2. REVUFORJ [Suspect]
     Active Substance: REVUMENIB CITRATE
     Route: 048
  3. REVUFORJ [Suspect]
     Active Substance: REVUMENIB CITRATE
     Route: 048
     Dates: start: 20250209

REACTIONS (4)
  - Pneumonia [Recovering/Resolving]
  - Influenza [Unknown]
  - Nasopharyngitis [Recovering/Resolving]
  - Diarrhoea [Unknown]

NARRATIVE: CASE EVENT DATE: 20250101
